FAERS Safety Report 10009120 (Version 2)
Quarter: 2014Q1

REPORT INFORMATION
  Report Type: Spontaneous
  Country: US (occurrence: US)
  Receive Date: 20140313
  Receipt Date: 20140313
  Transmission Date: 20141002
  Serious: Yes (Other)
  Sender: FDA-Public Use
  Company Number: US-GILEAD-2012-0057207

PATIENT
  Age: 55 Year
  Sex: Female

DRUGS (3)
  1. LETAIRIS [Suspect]
     Indication: PULMONARY HYPERTENSION
     Dosage: 5 MG, UNK
     Route: 048
     Dates: start: 20110610, end: 20120612
  2. REVATIO [Concomitant]
  3. TYVASO [Concomitant]

REACTIONS (4)
  - Drug ineffective [Unknown]
  - Cellulitis [Recovered/Resolved]
  - Dyspnoea [Unknown]
  - Local swelling [Recovered/Resolved]
